FAERS Safety Report 13020590 (Version 1)
Quarter: 2016Q4

REPORT INFORMATION
  Report Type: Spontaneous
  Country: US (occurrence: US)
  Receive Date: 20161212
  Receipt Date: 20161212
  Transmission Date: 20170207
  Serious: Yes (Other)
  Sender: FDA-Public Use
  Company Number: US-BAUSCH-BL-2016-030888

PATIENT
  Age: 71 Year
  Sex: Male

DRUGS (2)
  1. PROVENGE [Suspect]
     Active Substance: SIPULEUCEL-T
     Route: 042
     Dates: start: 20161025, end: 20161028
  2. PROVENGE [Suspect]
     Active Substance: SIPULEUCEL-T
     Indication: PROSTATE CANCER
     Route: 042
     Dates: start: 20161011, end: 20161014

REACTIONS (6)
  - Arrhythmia [Unknown]
  - Fall [Unknown]
  - Confusional state [Unknown]
  - Hypotension [Unknown]
  - Head injury [Unknown]
  - Dizziness [Unknown]

NARRATIVE: CASE EVENT DATE: 20161028
